FAERS Safety Report 8599201-0 (Version None)
Quarter: 2012Q3

REPORT INFORMATION
  Report Type: 
  Country: None (occurrence: None)
  Receive Date: 20120816
  Receipt Date: 20120808
  Transmission Date: 20120928
  Serious: Yes (Death, Life-Threatening, Hospitalization, Other)
  Sender: FDA-Public Use
  Company Number: US-MPIJNJ-2012-04634

PATIENT
  Age: 4 Year
  Sex: Female
  Weight: 13.7 kg

DRUGS (5)
  1. CYTARABINE [Suspect]
     Dosage: UNK, CYCLIC
     Route: 037
  2. VELCADE [Suspect]
     Indication: ACUTE MYELOID LEUKAEMIA
     Dosage: 1.3 MG/M2, CYCLIC
     Route: 040
     Dates: start: 20120620, end: 20120625
  3. CYTARABINE [Suspect]
     Indication: ACUTE MYELOID LEUKAEMIA
     Dosage: 100 MG/M2, CYCLIC
     Route: 042
     Dates: start: 20120620, end: 20120705
  4. DAUNORUBICIN HCL [Suspect]
     Indication: ACUTE MYELOID LEUKAEMIA
     Dosage: 50 MG/M2, CYCLIC
     Route: 042
     Dates: start: 20120620, end: 20120624
  5. ETOPOSIDE [Suspect]
     Indication: ACUTE MYELOID LEUKAEMIA
     Dosage: 100 MG/M2, CYCLIC
     Route: 042
     Dates: start: 20120620, end: 20120624

REACTIONS (13)
  - DIARRHOEA [None]
  - HYPOPHOSPHATAEMIA [None]
  - CAECITIS [None]
  - ACUTE RESPIRATORY DISTRESS SYNDROME [None]
  - LEFT VENTRICULAR DYSFUNCTION [None]
  - HYPOCALCAEMIA [None]
  - HYPOKALAEMIA [None]
  - BLOOD BILIRUBIN INCREASED [None]
  - HYPERNATRAEMIA [None]
  - ILEUS [None]
  - VENOOCCLUSIVE LIVER DISEASE [None]
  - CARDIAC FAILURE [None]
  - HYPONATRAEMIA [None]
